FAERS Safety Report 25352443 (Version 1)
Quarter: 2025Q2

REPORT INFORMATION
  Report Type: Spontaneous
  Country: GB (occurrence: GB)
  Receive Date: 20250523
  Receipt Date: 20250523
  Transmission Date: 20250717
  Serious: Yes (Disabling, Other)
  Sender: MYLAN
  Company Number: None

PATIENT
  Sex: Male

DRUGS (4)
  1. FINASTERIDE [Suspect]
     Active Substance: FINASTERIDE
     Indication: Alopecia
     Dosage: 1 MILLIGRAM, QD (STARTED TAKING IT APPROX. MAY 2024)
     Dates: start: 202405
  2. FINASTERIDE [Suspect]
     Active Substance: FINASTERIDE
     Dosage: 1 MILLIGRAM, QD (STARTED TAKING IT APPROX. MAY 2024)
     Route: 065
     Dates: start: 202405
  3. FINASTERIDE [Suspect]
     Active Substance: FINASTERIDE
     Dosage: 1 MILLIGRAM, QD (STARTED TAKING IT APPROX. MAY 2024)
     Route: 065
     Dates: start: 202405
  4. FINASTERIDE [Suspect]
     Active Substance: FINASTERIDE
     Dosage: 1 MILLIGRAM, QD (STARTED TAKING IT APPROX. MAY 2024)
     Dates: start: 202405

REACTIONS (2)
  - Erectile dysfunction [Not Recovered/Not Resolved]
  - Loss of libido [Recovering/Resolving]
